FAERS Safety Report 5364450-1 (Version None)
Quarter: 2007Q2

REPORT INFORMATION
  Report Type: 
  Country: None (occurrence: None)
  Receive Date: 20070611
  Receipt Date: 20061101
  Transmission Date: 20071010
  Serious: Yes (Life-Threatening, Other)
  Sender: FDA-Public Use
  Company Number: USA-2006-0025568

PATIENT
  Sex: Male

DRUGS (2)
  1. OXYCONTIN [Suspect]
     Indication: PROCEDURAL PAIN
     Dosage: 10 MG, SEE TEXT
  2. DILAUDID [Suspect]
     Indication: PROCEDURAL PAIN
     Dosage: PRN, INT

REACTIONS (1)
  - RESPIRATORY ARREST [None]
